FAERS Safety Report 4297650-2 (Version None)
Quarter: 2004Q1

REPORT INFORMATION
  Report Type: 
  Country: None (occurrence: None)
  Receive Date: 20040217
  Receipt Date: 20040217
  Transmission Date: 20041129
  Serious: Yes (Other)
  Sender: FDA-Public Use
  Company Number: None

PATIENT
  Age: 11 Year
  Sex: Male
  Weight: 52.1637 kg

DRUGS (1)
  1. PAXIL CR [Suspect]
     Indication: BIPOLAR DISORDER
     Dosage: 12.5 MG AT BEDTIME ORAL
     Route: 048
     Dates: start: 20031001, end: 20040105

REACTIONS (1)
  - AGGRESSION [None]
